FAERS Safety Report 18678645 (Version 2)
Quarter: 2021Q1

REPORT INFORMATION
  Report Type: Other
  Country: JP (occurrence: JP)
  Receive Date: 20201230
  Receipt Date: 20210105
  Transmission Date: 20210419
  Serious: Yes (Hospitalization)
  Sender: FDA-Public Use
  Company Number: JP-ROCHE-2740521

PATIENT
  Age: 40 Year
  Sex: Male
  Weight: 54 kg

DRUGS (5)
  1. PREDNISOLONE. [Concomitant]
     Active Substance: PREDNISOLONE
     Route: 048
  2. PACLITAXEL. [Concomitant]
     Active Substance: PACLITAXEL
     Indication: THYMOMA MALIGNANT
     Dosage: DOSAGE IS UNCERTAIN.
     Route: 041
     Dates: start: 201812
  3. LANSOPRAZOLE. [Concomitant]
     Active Substance: LANSOPRAZOLE
     Route: 048
  4. AVASTIN [Suspect]
     Active Substance: BEVACIZUMAB
     Indication: THYMOMA MALIGNANT
     Dosage: DOSAGE WAS UNCERTAIN.
     Route: 041
     Dates: start: 201812
  5. CARBOPLATIN. [Concomitant]
     Active Substance: CARBOPLATIN
     Indication: THYMOMA MALIGNANT
     Dosage: DOSAGE IS UNCERTAIN.
     Route: 041
     Dates: start: 201812

REACTIONS (3)
  - Myasthenia gravis crisis [Recovering/Resolving]
  - Intentional product use issue [Unknown]
  - Off label use [Unknown]

NARRATIVE: CASE EVENT DATE: 201901
